FAERS Safety Report 19437716 (Version 4)
Quarter: 2021Q3

REPORT INFORMATION
  Report Type: Report from Study
  Country: US (occurrence: US)
  Receive Date: 20210619
  Receipt Date: 20210914
  Transmission Date: 20211014
  Serious: Yes (Other)
  Sender: FDA-Public Use
  Company Number: NVSC2021US134596

PATIENT
  Sex: Female

DRUGS (2)
  1. PIQRAY [Suspect]
     Active Substance: ALPELISIB
     Dosage: 200 MG, QD
     Route: 048
     Dates: start: 20210520
  2. PIQRAY [Suspect]
     Active Substance: ALPELISIB
     Indication: BREAST CANCER
     Dosage: 300 MG, QD
     Route: 048
     Dates: start: 20210520

REACTIONS (6)
  - Vomiting [Unknown]
  - Gastric ulcer [Unknown]
  - Product dose omission issue [Unknown]
  - Rash erythematous [Unknown]
  - Gastritis [Unknown]
  - Rash [Unknown]
